FAERS Safety Report 5587337-8 (Version None)
Quarter: 2008Q1

REPORT INFORMATION
  Report Type: 
  Country: None (occurrence: None)
  Receive Date: 20080110
  Receipt Date: 20080105
  Transmission Date: 20080703
  Serious: Yes (Other)
  Sender: FDA-Public Use
  Company Number: IN-PFIZER INC-2008000012

PATIENT
  Sex: Female
  Weight: 55 kg

DRUGS (4)
  1. CLINDAMYCIN PHOSPHATE [Suspect]
     Indication: PLASMODIUM FALCIPARUM INFECTION
     Route: 065
  2. CEFTRIAXONE [Concomitant]
     Route: 051
  3. PARACETAMOL [Concomitant]
  4. PANTOPRAZOLE SODIUM [Concomitant]
     Route: 051

REACTIONS (1)
  - ABORTION SPONTANEOUS [None]
